FAERS Safety Report 17279421 (Version 4)
Quarter: 2020Q3

REPORT INFORMATION
  Report Type: Spontaneous
  Country: US (occurrence: US)
  Receive Date: 20200116
  Receipt Date: 20200819
  Transmission Date: 20201102
  Serious: Yes (Hospitalization, Other)
  Sender: FDA-Public Use
  Company Number: US-ACTELION-A-NJ2020-200767

PATIENT
  Sex: Female
  Weight: 117.01 kg

DRUGS (4)
  1. WARFARIN [Concomitant]
     Active Substance: WARFARIN
  2. ANASTROZOLE. [Concomitant]
     Active Substance: ANASTROZOLE
  3. OXYGEN. [Concomitant]
     Active Substance: OXYGEN
     Dosage: 2 L/M
  4. VENTAVIS [Suspect]
     Active Substance: ILOPROST
     Indication: PULMONARY ARTERIAL HYPERTENSION
     Dosage: 5 MCG, 6?9 TIMES PER DAY
     Route: 055

REACTIONS (7)
  - Lymph node haemorrhage [Unknown]
  - Breast cancer [Unknown]
  - Loss of consciousness [Unknown]
  - Head discomfort [Unknown]
  - Hospitalisation [Unknown]
  - Lymphadenectomy [Unknown]
  - Rhinorrhoea [Unknown]
